FAERS Safety Report 11807283 (Version 1)
Quarter: 2015Q4

REPORT INFORMATION
  Report Type: Spontaneous
  Country: US (occurrence: US)
  Receive Date: 20151207
  Receipt Date: 20151207
  Transmission Date: 20160305
  Serious: Yes (Death)
  Sender: FDA-Public Use
  Company Number: US-SA-2015SA204498

PATIENT
  Age: 68 Year
  Sex: Female

DRUGS (1)
  1. RENVELA [Suspect]
     Active Substance: SEVELAMER CARBONATE
     Indication: DIALYSIS
     Dosage: PACKETS OF THE POWDER
     Route: 065
     Dates: start: 2015, end: 20151122

REACTIONS (2)
  - Death [Fatal]
  - Malaise [Not Recovered/Not Resolved]

NARRATIVE: CASE EVENT DATE: 2015
